FAERS Safety Report 6151564-1 (Version None)
Quarter: 2009Q2

REPORT INFORMATION
  Report Type: 
  Country: None (occurrence: None)
  Receive Date: 20090408
  Receipt Date: 20090401
  Transmission Date: 20091009
  Serious: Yes (Other)
  Sender: FDA-Public Use
  Company Number: OSCN-NO-0904S-0186

PATIENT
  Age: 72 Year
  Sex: Male
  Weight: 74 kg

DRUGS (1)
  1. OMNISCAN [Suspect]
     Indication: DRUG USE FOR UNKNOWN INDICATION
     Dosage: SINGLE DOSE, I.V.
     Route: 042
     Dates: start: 20051116, end: 20051116

REACTIONS (4)
  - ECZEMA [None]
  - NEPHROGENIC SYSTEMIC FIBROSIS [None]
  - OSTEOARTHRITIS [None]
  - SKIN HYPERTROPHY [None]
